FAERS Safety Report 12612863 (Version 1)
Quarter: 2016Q3

REPORT INFORMATION
  Report Type: Spontaneous
  Country: GB (occurrence: GB)
  Receive Date: 20160802
  Receipt Date: 20160802
  Transmission Date: 20161109
  Serious: Yes (Disabling, Other)
  Sender: FDA-Public Use
  Company Number: GB-CIPLA LTD.-2016GB10087

PATIENT

DRUGS (2)
  1. CARBOPLATIN. [Suspect]
     Active Substance: CARBOPLATIN
     Indication: TESTIS CANCER
     Dosage: 1 DF, (SINGLE HIGH DOSE-STANDARD TESTICULAR CANCER TREATMENT FOLLOWING REMOVAL OF ONE TESTICLE)
     Route: 051
     Dates: start: 20140827, end: 20140828
  2. VITAMIN SUPPLEMENT [Concomitant]
     Active Substance: VITAMINS
     Dosage: 1000 UNKNOWN UNITS
     Route: 065

REACTIONS (8)
  - Cognitive disorder [Not Recovered/Not Resolved]
  - Fatigue [Not Recovered/Not Resolved]
  - Myalgia [Not Recovered/Not Resolved]
  - Arthralgia [Not Recovered/Not Resolved]
  - Vitamin D deficiency [Unknown]
  - Dizziness [Not Recovered/Not Resolved]
  - Malaise [Not Recovered/Not Resolved]
  - Inflammation [Unknown]

NARRATIVE: CASE EVENT DATE: 20140827
